FAERS Safety Report 7487321-3 (Version None)
Quarter: 2011Q2

REPORT INFORMATION
  Report Type: 
  Country: None (occurrence: None)
  Receive Date: 20110518
  Receipt Date: 20110509
  Transmission Date: 20111010
  Serious: Yes (Death, Life-Threatening, Other)
  Sender: FDA-Public Use
  Company Number: NL-GENZYME-200821164GPV

PATIENT
  Age: 32 Year
  Sex: Female

DRUGS (42)
  1. CYCLOPHOSPHAMIDE [Suspect]
     Dosage: 750 MG/M2, ONCE Q14DAYS
     Route: 042
     Dates: end: 20060301
  2. VINCRISTINE [Suspect]
     Dosage: 1.4 MG/M2, ONCE DAY 1
     Route: 042
     Dates: end: 20060301
  3. VINCRISTINE [Suspect]
     Dosage: 1.4 MG/M2, ONCE DAY 1
     Route: 042
     Dates: end: 20060301
  4. CYCLOPHOSPHAMIDE [Suspect]
     Dosage: 750 MG/M2, ONCE Q14DAYS
     Route: 042
     Dates: end: 20060301
  5. DOXORUBICIN HCL [Suspect]
     Dosage: 50 MG/M2, ONCE DAY 1
     Route: 042
     Dates: end: 20060301
  6. ACETAMINOPHEN [Concomitant]
     Indication: PREMEDICATION
     Dosage: 1000 MG, UNK
  7. ALLOPURINOL [Concomitant]
     Indication: PROPHYLAXIS
     Dosage: 300 MG, UNK
  8. CAMPATH [Suspect]
     Dosage: 30 MG, DAY 10
     Route: 058
  9. CYCLOPHOSPHAMIDE [Suspect]
     Dosage: 750 MG/M2, ONCE Q14DAYS
     Route: 042
     Dates: end: 20060301
  10. DOXORUBICIN HCL [Suspect]
     Dosage: 50 MG/M2, ONCE DAY 1
     Route: 042
     Dates: end: 20060301
  11. DOXORUBICIN HCL [Suspect]
     Dosage: 50 MG/M2, ONCE DAY 1
     Route: 042
     Dates: end: 20060301
  12. FLUCONAZOLE [Concomitant]
     Indication: ANTIFUNGAL PROPHYLAXIS
     Dosage: UNK
  13. CAMPATH [Suspect]
     Dosage: 30 MG, DAYS 1, 5, 10
     Route: 058
  14. CAMPATH [Suspect]
     Dosage: 30 MG, DAYS 1, 5, 10
     Route: 058
  15. CYCLOPHOSPHAMIDE [Suspect]
     Indication: T-CELL LYMPHOMA
     Dosage: 750 MG/M2, ONCE Q14DAYS
     Route: 042
     Dates: end: 20060301
  16. CYCLOPHOSPHAMIDE [Suspect]
     Dosage: 750 MG/M2, ONCE Q14DAYS
     Route: 042
     Dates: end: 20060301
  17. DOXORUBICIN HCL [Suspect]
     Indication: T-CELL LYMPHOMA
     Dosage: 50 MG/M2, ONCE DAY 1
     Route: 042
     Dates: end: 20060301
  18. DOXORUBICIN HCL [Suspect]
     Dosage: 50 MG/M2, ONCE DAY 1
     Route: 042
     Dates: end: 20060301
  19. DOXORUBICIN HCL [Suspect]
     Dosage: 50 MG/M2, ONCE DAY 1
     Route: 042
     Dates: end: 20060301
  20. VINCRISTINE [Suspect]
     Dosage: 1.4 MG/M2, ONCE DAY 1
     Route: 042
     Dates: end: 20060301
  21. VINCRISTINE [Suspect]
     Dosage: 1.4 MG/M2, ONCE DAY 1
     Route: 042
     Dates: end: 20060301
  22. PEGFILGRASTIM [Concomitant]
     Indication: PRODUCT USED FOR UNKNOWN INDICATION
     Dosage: 6 MG, ONCE, DAY 2
     Route: 058
  23. CAMPATH [Suspect]
     Dosage: 10 MG, DAY 5
     Route: 058
  24. CAMPATH [Suspect]
     Dosage: 30 MG, DAYS 1, 5, 10
     Route: 058
  25. CAMPATH [Suspect]
     Dosage: 30 MG, DAYS 1, 5, 10
     Route: 058
  26. CYCLOPHOSPHAMIDE [Suspect]
     Dosage: 750 MG/M2, ONCE Q14DAYS
     Route: 042
     Dates: end: 20060301
  27. VINCRISTINE [Suspect]
     Indication: T-CELL LYMPHOMA
     Dosage: 1.4 MG/M2, ONCE DAY 1
     Route: 042
     Dates: end: 20060301
  28. VINCRISTINE [Suspect]
     Dosage: 1.4 MG/M2, ONCE DAY 1
     Route: 042
     Dates: end: 20060301
  29. VINCRISTINE [Suspect]
     Dosage: 1.4 MG/M2, ONCE DAY 1
     Route: 042
     Dates: end: 20060301
  30. COTRIM [Concomitant]
     Indication: INFECTION PROPHYLAXIS
     Dosage: 480 MG, BID, 3X/W
     Route: 065
  31. VALACICLOVIR [Concomitant]
     Indication: ANTIVIRAL PROPHYLAXIS
     Dosage: 500 MG, BID
  32. CAMPATH [Suspect]
     Dosage: 30 MG, DAYS 1, 5, 10
     Route: 058
  33. CYCLOPHOSPHAMIDE [Suspect]
     Dosage: 750 MG/M2, ONCE Q14DAYS
     Route: 042
     Dates: end: 20060301
  34. DOXORUBICIN HCL [Suspect]
     Dosage: 50 MG/M2, ONCE DAY 1
     Route: 042
     Dates: end: 20060301
  35. ANTIHISTAMINES [Concomitant]
     Indication: PREMEDICATION
  36. CAMPATH [Suspect]
     Indication: T-CELL LYMPHOMA
     Dosage: 3 MG, DAY 1
     Route: 058
     Dates: end: 20080301
  37. CAMPATH [Suspect]
     Dosage: 30 MG, DAYS 1, 5, 10
     Route: 058
  38. CAMPATH [Suspect]
     Dosage: 30 MG, DAYS 1, 5, 10
     Route: 058
  39. CYCLOPHOSPHAMIDE [Suspect]
     Dosage: 750 MG/M2, ONCE Q14DAYS
     Route: 042
     Dates: end: 20060301
  40. DOXORUBICIN HCL [Suspect]
     Dosage: 50 MG/M2, ONCE DAY 1
     Route: 042
     Dates: end: 20060301
  41. VINCRISTINE [Suspect]
     Dosage: 1.4 MG/M2, ONCE DAY 1
     Route: 042
     Dates: end: 20060301
  42. PREDNISONE [Suspect]
     Indication: T-CELL LYMPHOMA
     Dosage: 100 MG, QDX5 DAYS 1-5
     Route: 048
     Dates: end: 20060301

REACTIONS (7)
  - LYMPHOPROLIFERATIVE DISORDER [None]
  - BRAIN NEOPLASM [None]
  - LYMPHOPENIA [None]
  - T-CELL LYMPHOMA RECURRENT [None]
  - DIFFUSE LARGE B-CELL LYMPHOMA [None]
  - EPILEPSY [None]
  - EPSTEIN-BARR VIRUS INFECTION [None]
